FAERS Safety Report 19364304 (Version 2)
Quarter: 2021Q2

REPORT INFORMATION
  Report Type: Spontaneous
  Country: US (occurrence: US)
  Receive Date: 20210602
  Receipt Date: 20210624
  Transmission Date: 20210717
  Serious: Yes (Hospitalization)
  Sender: FDA-Public Use
  Company Number: US-AVEO ONCOLOGY-2021-AVEO-US003344

PATIENT

DRUGS (1)
  1. FOTIVDA [Suspect]
     Active Substance: TIVOZANIB HYDROCHLORIDE
     Indication: RENAL CELL CARCINOMA
     Dosage: 1.34 MG, CYCLIC, 1 CAPSULE FOR 21 DAYS AND 7 DAYS OFF
     Route: 048

REACTIONS (10)
  - Muscle strain [Unknown]
  - Muscle tightness [Unknown]
  - Night sweats [Unknown]
  - Pain [Unknown]
  - Decreased appetite [Unknown]
  - Urine output decreased [Unknown]
  - Nausea [Unknown]
  - Dehydration [Unknown]
  - Product dose omission issue [Unknown]
  - Fluid intake reduced [Unknown]

NARRATIVE: CASE EVENT DATE: 20210513
